FAERS Safety Report 11101990 (Version 4)
Quarter: 2015Q3

REPORT INFORMATION
  Report Type: Spontaneous
  Country: MM (occurrence: MM)
  Receive Date: 20150510
  Receipt Date: 20150702
  Transmission Date: 20151125
  Serious: Yes (Other)
  Sender: FDA-Public Use
  Company Number: MM-PFIZER INC-2015157642

PATIENT
  Age: 58 Year
  Sex: Male

DRUGS (3)
  1. AVASTIN [Concomitant]
     Active Substance: BEVACIZUMAB
     Indication: COLON CANCER METASTATIC
     Dosage: 400 MG, BIWEEKLY FOR 30 TIMES
     Dates: start: 201408
  2. CAMPTO [Suspect]
     Active Substance: IRINOTECAN
     Dosage: 340 MG, UNK
     Route: 042
     Dates: start: 201505, end: 20150516
  3. CAMPTO [Suspect]
     Active Substance: IRINOTECAN
     Indication: COLON CANCER METASTATIC
     Dosage: 200 MG, BIWEEKLY FOR 30 TIMES
     Route: 042
     Dates: start: 20140622

REACTIONS (2)
  - Diarrhoea haemorrhagic [Not Recovered/Not Resolved]
  - Onycholysis [Not Recovered/Not Resolved]
